FAERS Safety Report 4714857-8 (Version None)
Quarter: 2005Q3

REPORT INFORMATION
  Report Type: 
  Country: None (occurrence: None)
  Receive Date: 20050715
  Receipt Date: 20050706
  Transmission Date: 20060218
  Serious: Yes (Other)
  Sender: FDA-Public Use
  Company Number: 2005AP03757

PATIENT
  Sex: Male

DRUGS (3)
  1. CASODEX [Suspect]
     Indication: PROSTATE CANCER
     Route: 048
  2. ZOLADEX [Suspect]
     Indication: PROSTATE CANCER
     Route: 058
  3. WARFARIN [Concomitant]
     Route: 048

REACTIONS (1)
  - HAEMATEMESIS [None]
